FAERS Safety Report 7403598-4 (Version None)
Quarter: 2011Q2

REPORT INFORMATION
  Report Type: 
  Country: None (occurrence: None)
  Receive Date: 20110408
  Receipt Date: 20110406
  Transmission Date: 20111010
  Serious: Yes (Death, Other)
  Sender: FDA-Public Use
  Company Number: PHHY2011TR28268

PATIENT
  Age: 21 Year
  Sex: Female

DRUGS (2)
  1. COTRIM [Suspect]
     Indication: PROPHYLAXIS
     Dosage: 20 MG/KG, QD
  2. WARFARIN SODIUM [Concomitant]

REACTIONS (11)
  - GASTROINTESTINAL HAEMORRHAGE [None]
  - TACHYCARDIA [None]
  - CONJUNCTIVAL PALLOR [None]
  - CARDIO-RESPIRATORY ARREST [None]
  - RALES [None]
  - RENAL FAILURE [None]
  - PYREXIA [None]
  - HEPATIC FAILURE [None]
  - PNEUMOCYSTIS JIROVECI PNEUMONIA [None]
  - TACHYPNOEA [None]
  - RHONCHI [None]
